FAERS Safety Report 11055400 (Version 2)
Quarter: 2015Q2

REPORT INFORMATION
  Report Type: Spontaneous
  Country: US (occurrence: US)
  Receive Date: 20150422
  Receipt Date: 20150615
  Transmission Date: 20150821
  Serious: Yes (Life-Threatening, Hospitalization, Disabling, Other)
  Sender: FDA-Public Use
  Company Number: US-JNJFOC-20150319893

PATIENT
  Age: 18 Year
  Sex: Male
  Weight: 68.04 kg

DRUGS (4)
  1. GUAIFENESIN. [Concomitant]
     Active Substance: GUAIFENESIN
     Indication: PRODUCT USED FOR UNKNOWN INDICATION
     Dosage: 100MG/5ML, ONCE EVERY NIGHT AT BEDTIME
     Route: 048
  2. ALBUTEROL. [Concomitant]
     Active Substance: ALBUTEROL
     Indication: DYSPNOEA
     Dosage: 2.5MG/3ML, INHALE 3ML INTO THE LUNGS EVERY 4 HOURS
     Route: 055
  3. INVEGA SUSTENNA [Suspect]
     Active Substance: PALIPERIDONE PALMITATE
     Indication: PRODUCT USED FOR UNKNOWN INDICATION
     Route: 030
     Dates: start: 20150309, end: 20150309
  4. BENZOTROPINE [Concomitant]
     Active Substance: BENZTROPINE
     Indication: PRODUCT USED FOR UNKNOWN INDICATION
     Route: 065

REACTIONS (18)
  - Dementia [Unknown]
  - Musculoskeletal stiffness [Unknown]
  - Lymphadenopathy [Unknown]
  - Stereotypy [Unknown]
  - Hyperhidrosis [Not Recovered/Not Resolved]
  - Motor dysfunction [Unknown]
  - Gait disturbance [Recovering/Resolving]
  - Disturbance in attention [Recovering/Resolving]
  - Drooling [Recovering/Resolving]
  - Cognitive disorder [Unknown]
  - Mastication disorder [Recovering/Resolving]
  - Tongue disorder [Unknown]
  - Facial pain [Recovering/Resolving]
  - Swollen tongue [Recovering/Resolving]
  - Musculoskeletal stiffness [Recovering/Resolving]
  - Musculoskeletal stiffness [Not Recovered/Not Resolved]
  - Aphagia [Unknown]
  - Medication error [Unknown]

NARRATIVE: CASE EVENT DATE: 201503
